FAERS Safety Report 10235255 (Version 1)
Quarter: 2014Q1

REPORT INFORMATION
  Report Type: Spontaneous
  Country: US (occurrence: None)
  Receive Date: 20140306
  Receipt Date: 20140306
  Transmission Date: 20141002
  Serious: Yes (Other)
  Sender: FDA-Public Use
  Company Number: 163-21880-13053823

PATIENT
  Age: 62 Year
  Sex: Female

DRUGS (1)
  1. REVLIMID (LENALIDOMIDE) (25 MILLIGRAM) [Suspect]
     Indication: PLASMA CELL MYELOMA
     Dates: start: 20120210, end: 2012

REACTIONS (2)
  - Anaemia [None]
  - Plasma cell myeloma [None]
